FAERS Safety Report 21243520 (Version 1)
Quarter: 2022Q3

REPORT INFORMATION
  Report Type: Spontaneous
  Country: US (occurrence: None)
  Receive Date: 20220823
  Receipt Date: 20220823
  Transmission Date: 20221027
  Serious: No
  Sender: FDA-Public Use
  Company Number: 2022A280235

PATIENT
  Sex: Male
  Weight: 70.3 kg

DRUGS (1)
  1. FARXIGA [Suspect]
     Active Substance: DAPAGLIFLOZIN PROPANEDIOL
     Indication: Cardiac failure
     Route: 048
     Dates: start: 2022

REACTIONS (4)
  - Genital erythema [Unknown]
  - Tenderness [Unknown]
  - Genital rash [Unknown]
  - Genital discomfort [Unknown]
